FAERS Safety Report 8933431 (Version 1)
Quarter: 2012Q4

REPORT INFORMATION
  Report Type: Report from Study
  Country: IN (occurrence: IN)
  Receive Date: 20121128
  Receipt Date: 20121128
  Transmission Date: 20130627
  Serious: Yes (Hospitalization)
  Sender: FDA-Public Use
  Company Number: IN-PFIZER INC-2012295561

PATIENT
  Age: 46 Year
  Sex: Male

DRUGS (23)
  1. CISPLATIN [Suspect]
     Indication: SQUAMOUS CELL CARCINOMA OF HEAD AND NECK
     Dosage: 31 mg/m2, 1x/day
     Route: 042
  2. P276-00 [Suspect]
     Indication: SQUAMOUS CELL CARCINOMA OF HEAD AND NECK
     Dosage: 100 mg/m2, 1x/day
     Route: 042
     Dates: start: 20120903, end: 20120911
  3. RANITIDINE [Concomitant]
     Indication: PROPHYLAXIS
     Dosage: 50 mg, UNK
     Route: 048
     Dates: start: 20120925, end: 20120925
  4. DEXAMETHASONE [Concomitant]
     Indication: PROPHYLAXIS
     Dosage: 8 mg, UNK
     Route: 048
     Dates: start: 20120925, end: 20120925
  5. GRANISETRON [Concomitant]
     Indication: PROPHYLAXIS
     Dosage: 3 mg, UNK
     Route: 048
     Dates: start: 20120925, end: 20120925
  6. MANNITOL [Concomitant]
     Indication: PROPHYLAXIS
     Dosage: 20 mg, UNK
     Route: 048
     Dates: start: 20120925, end: 20120925
  7. POTASSIUM CHLORIDE [Concomitant]
     Indication: PROPHYLAXIS
     Dosage: 150 mg, UNK
     Route: 048
     Dates: start: 20120925, end: 20120925
  8. MAGNESIUM SULFATE [Concomitant]
     Indication: PROPHYLAXIS
     Dosage: 500 mg, UNK
     Route: 048
     Dates: start: 20121025, end: 20121025
  9. DICYCLOMINE HYDROCHLORIDE [Concomitant]
     Indication: ABDOMINAL PAIN
     Dosage: 30 mg, UNK
     Route: 048
     Dates: start: 20121001
  10. MEFENAMIC ACID [Concomitant]
     Indication: ABDOMINAL PAIN
     Dosage: 750 mg, UNK
     Route: 048
     Dates: start: 20121001
  11. PANTOPRAZOLE [Concomitant]
     Indication: PROPHYLAXIS
     Dosage: 40 mg, UNK
     Route: 048
     Dates: start: 20121001
  12. DOMPERIDONE [Concomitant]
     Indication: VOMITING PROPHYLAXIS
     Dosage: 10 mg, UNK
     Route: 048
     Dates: start: 20121001
  13. PARACETAMOL [Concomitant]
     Indication: FEVER
     Dosage: 650 mg, UNK
     Route: 048
     Dates: start: 20121003, end: 20121003
  14. FLUCONAZOLE [Concomitant]
     Indication: ORAL HYGIENE
     Dosage: 150 mg, UNK
     Route: 048
     Dates: start: 20121005, end: 20121012
  15. ALUMINIUM HYDROXIDE [Concomitant]
     Indication: ANOREXIA
     Dosage: 750 mg, UNK
     Route: 048
     Dates: start: 20121005
  16. MAGNESIUM HYDROXIDE [Concomitant]
     Indication: ANOREXIA
     Dosage: 150 mg, UNK
     Route: 048
     Dates: start: 20121005
  17. DIMETHICONE [Concomitant]
     Indication: ANOREXIA
     Dosage: 150 mg, UNK
     Route: 048
     Dates: start: 20121015
  18. ALPRAZOLAM [Concomitant]
     Indication: INSOMNIA
     Dosage: 0.5 mg, UNK
     Route: 048
     Dates: start: 20121005, end: 20121010
  19. TERBUTALINE SULFATE [Concomitant]
     Indication: COUGH
     Dosage: 4.5 mg, UNK
     Route: 048
     Dates: start: 20121005
  20. AMBROXOL HYDROCHLORIDE [Concomitant]
     Indication: COUGH
     Dosage: 45 mg, UNK
     Route: 048
     Dates: start: 20121005
  21. GUAIFENESIN [Concomitant]
     Indication: COUGH
     Dosage: 150 mg, UNK
     Route: 048
     Dates: start: 20121005
  22. TRAMADOL [Concomitant]
     Indication: HYPOCHONDRIAL PAIN
     Dosage: 50 mg, UNK
     Route: 048
     Dates: start: 20121007, end: 20121007
  23. DICLOFENAC [Concomitant]
     Indication: HYPOCHONDRIAL PAIN
     Dosage: 25 mg/ml, UNK
     Route: 048
     Dates: start: 20121007, end: 20121007

REACTIONS (1)
  - Pancytopenia [Recovered/Resolved]
